FAERS Safety Report 13617540 (Version 1)
Quarter: 2017Q2

REPORT INFORMATION
  Report Type: Spontaneous
  Country: US (occurrence: US)
  Receive Date: 20170606
  Receipt Date: 20170606
  Transmission Date: 20170830
  Serious: No
  Sender: FDA-Public Use
  Company Number: US-SA-2017SA038292

PATIENT
  Age: 59 Year
  Sex: Male
  Weight: 79.3 kg

DRUGS (3)
  1. LANTUS SOLOSTAR [Suspect]
     Active Substance: INSULIN GLARGINE
     Indication: DIABETES MELLITUS
     Dosage: DOSE:21 UNIT(S)
     Route: 065
  2. LANTUS SOLOSTAR [Suspect]
     Active Substance: INSULIN GLARGINE
     Indication: DIABETES MELLITUS
     Dosage: DOSE:22 UNIT(S)
     Route: 065
     Dates: start: 2007
  3. SOLOSTAR [Suspect]
     Active Substance: DEVICE
     Indication: DIABETES MELLITUS
     Dates: start: 2007

REACTIONS (2)
  - Intentional product misuse [Unknown]
  - Blood glucose increased [Recovered/Resolved]

NARRATIVE: CASE EVENT DATE: 20170228
